FAERS Safety Report 5937098-5 (Version None)
Quarter: 2008Q4

REPORT INFORMATION
  Report Type: 
  Country: None (occurrence: None)
  Receive Date: 20081031
  Receipt Date: 20081022
  Transmission Date: 20090506
  Serious: Yes (Other)
  Sender: FDA-Public Use
  Company Number: PHHY2008CA25245

PATIENT
  Sex: Female

DRUGS (7)
  1. DIOVAN [Suspect]
     Indication: BLOOD PRESSURE
     Dosage: 80 MG, QD
     Route: 048
     Dates: start: 20070507, end: 20081010
  2. DIOVAN [Suspect]
     Dosage: 40 MG
  3. LORAZEPAM [Concomitant]
  4. ANTIDEPRESSANTS [Concomitant]
  5. XALATAN [Concomitant]
     Dosage: 1 DROP
  6. DILAUDID [Concomitant]
     Dosage: 2 MG, Q6H
  7. ARIMIDEX [Concomitant]
     Dosage: 1 MG, ONCE/SINGLE

REACTIONS (4)
  - BREAST OPERATION [None]
  - DIZZINESS [None]
  - FALL [None]
  - HYPOTENSION [None]
